FAERS Safety Report 8304042-5 (Version None)
Quarter: 2012Q2

REPORT INFORMATION
  Report Type: 
  Country: None (occurrence: None)
  Receive Date: 20120418
  Receipt Date: 20111005
  Transmission Date: 20120825
  Serious: No
  Sender: FDA-Public Use
  Company Number: AEUSA201100261

PATIENT
  Age: 68 Year
  Sex: Female
  Weight: 49.4421 kg

DRUGS (5)
  1. PROLASTIN-C [Suspect]
     Indication: ALPHA-1 ANTI-TRYPSIN DEFICIENCY
     Dosage: QW;IV
     Route: 042
  2. PAXIL [Concomitant]
  3. CARDIZEM [Concomitant]
  4. CEFTIN [Concomitant]
  5. TOBRAMYCIN [Concomitant]

REACTIONS (5)
  - BONE PAIN [None]
  - PAIN IN EXTREMITY [None]
  - PSEUDOMONAS INFECTION [None]
  - THROMBOSIS [None]
  - ARTHRALGIA [None]
